FAERS Safety Report 8346423-X (Version None)
Quarter: 2012Q2

REPORT INFORMATION
  Report Type: 
  Country: None (occurrence: None)
  Receive Date: 20120509
  Receipt Date: 20120507
  Transmission Date: 20120825
  Serious: Yes (Other)
  Sender: FDA-Public Use
  Company Number: JP-PFIZER INC-2012110614

PATIENT
  Age: 39 Year
  Sex: Female

DRUGS (2)
  1. PAXIL [Concomitant]
     Dosage: UNK
     Dates: start: 20010101
  2. ALPRAZOLAM [Suspect]
     Indication: DIZZINESS
     Dosage: 1.2 MG, 1X/DAY
     Route: 048
     Dates: start: 20010101

REACTIONS (5)
  - DRUG INEFFECTIVE [None]
  - WEIGHT INCREASED [None]
  - SOMNOLENCE [None]
  - UTERINE DISORDER [None]
  - IRRITABILITY [None]
